FAERS Safety Report 9507009 (Version 2)
Quarter: 2013Q3

REPORT INFORMATION
  Report Type: Spontaneous
  Country: FR (occurrence: None)
  Receive Date: 20130904
  Receipt Date: 20130912
  Transmission Date: 20140515
  Serious: Yes (Hospitalization)
  Sender: FDA-Public Use
  Company Number: DSM-2013-00794

PATIENT
  Age: 59 Year
  Sex: Male

DRUGS (1)
  1. COOLMETEC [Suspect]
     Indication: PRODUCT USED FOR UNKNOWN INDICATION
     Route: 048
     Dates: start: 201203, end: 201307

REACTIONS (6)
  - Pruritus generalised [None]
  - Diarrhoea [None]
  - Weight decreased [None]
  - Hypokalaemia [None]
  - Dehydration [None]
  - Gastrointestinal disorder [None]
